FAERS Safety Report 5977961-2 (Version None)
Quarter: 2008Q4

REPORT INFORMATION
  Report Type: 
  Country: None (occurrence: None)
  Receive Date: 20081203
  Receipt Date: 20081113
  Transmission Date: 20090506
  Serious: No
  Sender: FDA-Public Use
  Company Number: US-B.I. PHARMACEUTICALS,INC./RIDGEFIELD-2008-BP-17205BP

PATIENT
  Age: 83 Year
  Sex: Male

DRUGS (3)
  1. FLOMAX [Suspect]
     Indication: PROSTATE CANCER
     Dosage: .4MG
     Route: 048
     Dates: start: 20070101, end: 20081112
  2. UNIDENTIFIED MEDICATION [Concomitant]
     Indication: PROSTATE CANCER
  3. OTHER MEDICATIONS [Concomitant]

REACTIONS (1)
  - NOCTURIA [None]
